FAERS Safety Report 9630400 (Version 1)
Quarter: 2013Q4

REPORT INFORMATION
  Report Type: Spontaneous
  Country: US (occurrence: US)
  Receive Date: 20131018
  Receipt Date: 20131018
  Transmission Date: 20140711
  Serious: Yes (Other)
  Sender: FDA-Public Use
  Company Number: US-BIOGENIDEC-2013BI100573

PATIENT
  Age: 36 Year
  Sex: Female

DRUGS (2)
  1. AVONEX [Suspect]
     Indication: MULTIPLE SCLEROSIS
     Route: 030
     Dates: start: 19990101, end: 20020101
  2. AVONEX [Suspect]
     Indication: MULTIPLE SCLEROSIS
     Route: 030
     Dates: start: 20030901

REACTIONS (13)
  - Epilepsy [Not Recovered/Not Resolved]
  - Petit mal epilepsy [Recovered/Resolved]
  - Dysgeusia [Recovered/Resolved]
  - Fall [Recovered/Resolved]
  - Migraine [Recovered/Resolved]
  - Neck deformity [Recovered/Resolved]
  - Procedural pain [Recovered/Resolved]
  - Trigeminal neuralgia [Recovered/Resolved]
  - Contusion [Recovered/Resolved]
  - Herpes zoster [Not Recovered/Not Resolved]
  - Muscle spasms [Recovered/Resolved]
  - Liver function test abnormal [Not Recovered/Not Resolved]
  - Bone pain [Recovered/Resolved]
